FAERS Safety Report 19749903 (Version 1)
Quarter: 2021Q3

REPORT INFORMATION
  Report Type: Spontaneous
  Country: NL (occurrence: NL)
  Receive Date: 20210826
  Receipt Date: 20210826
  Transmission Date: 20211014
  Serious: Yes (Other)
  Sender: FDA-Public Use
  Company Number: NL-ASTELLAS-2021US025873

PATIENT
  Age: 55 Year
  Sex: Female

DRUGS (1)
  1. BETMIGA [Suspect]
     Active Substance: MIRABEGRON
     Indication: URINARY TRACT INFECTION
     Dosage: 50 MG (1 TABLET), ONCE DAILY
     Route: 048
     Dates: start: 202106

REACTIONS (1)
  - Intraocular pressure decreased [Recovering/Resolving]

NARRATIVE: CASE EVENT DATE: 20210708
